FAERS Safety Report 23179300 (Version 2)
Quarter: 2024Q2

REPORT INFORMATION
  Report Type: Spontaneous
  Country: FR (occurrence: FR)
  Receive Date: 20231113
  Receipt Date: 20240424
  Transmission Date: 20240715
  Serious: Yes (Other)
  Sender: FDA-Public Use
  Company Number: FR-ABBVIE-5491380

PATIENT
  Sex: Female
  Weight: 91 kg

DRUGS (1)
  1. RINVOQ [Suspect]
     Active Substance: UPADACITINIB
     Indication: Rheumatoid arthritis
     Route: 048
     Dates: start: 20211126, end: 20231107

REACTIONS (2)
  - Renal cancer [Unknown]
  - Renal colic [Unknown]

NARRATIVE: CASE EVENT DATE: 20230101
